FAERS Safety Report 5514721-0 (Version None)
Quarter: 2007Q4

REPORT INFORMATION
  Report Type: 
  Country: None (occurrence: None)
  Receive Date: 20071113
  Receipt Date: 20071105
  Transmission Date: 20080405
  Serious: Yes (Other)
  Sender: FDA-Public Use
  Company Number: BE-GILEAD-2007-0013926

PATIENT
  Sex: Female

DRUGS (7)
  1. VISTIDE [Suspect]
     Indication: PROGRESSIVE MULTIFOCAL LEUKOENCEPHALOPATHY
     Route: 041
     Dates: start: 20070620, end: 20070718
  2. AMOXICILLIN [Concomitant]
  3. BACTRIM [Concomitant]
     Dates: start: 20070401
  4. SPORANOX [Concomitant]
     Route: 048
     Dates: start: 20061101
  5. PREDNISONE [Concomitant]
  6. IMMUNOGLOBULINS [Concomitant]
     Dates: start: 20070401
  7. PROBENECID [Concomitant]

REACTIONS (5)
  - DIARRHOEA [None]
  - HEADACHE [None]
  - NAUSEA [None]
  - RECTAL PROLAPSE [None]
  - VOMITING [None]
